FAERS Safety Report 8850661 (Version 2)
Quarter: 2012Q4

REPORT INFORMATION
  Report Type: 
  Country: US (occurrence: US)
  Receive Date: 20121019
  Receipt Date: 20121106
  Transmission Date: 20130627
  Serious: Yes (Other)
  Sender: FDA-Public Use
  Company Number: US-ROCHE-1145149

PATIENT
  Age: 47 Year
  Sex: Female
  Weight: 98.06 kg

DRUGS (5)
  1. XOLAIR [Suspect]
     Indication: ASTHMA
     Route: 058
     Dates: start: 20120217
  2. PRAVASTATIN [Concomitant]
  3. SINGULAIR [Concomitant]
     Indication: ASTHMA
     Route: 048
  4. DULERA [Concomitant]
     Indication: ASTHMA
     Dosage: 2 puffs  Route:inhalation
     Route: 065
  5. ALLEGRA [Concomitant]
     Indication: ASTHMA
     Route: 048

REACTIONS (6)
  - Vaginal haemorrhage [Recovering/Resolving]
  - Myometritis [Recovering/Resolving]
  - Anaemia [Unknown]
  - Hypertension [Not Recovered/Not Resolved]
  - Cardiomyopathy [Unknown]
  - Ejection fraction decreased [Unknown]
